FAERS Safety Report 5869949-7 (Version None)
Quarter: 2008Q3

REPORT INFORMATION
  Report Type: 
  Country: None (occurrence: None)
  Receive Date: 20080904
  Receipt Date: 20080822
  Transmission Date: 20090109
  Serious: Yes (Death)
  Sender: FDA-Public Use
  Company Number: JP-PFIZER INC-2008055352

PATIENT
  Sex: Male

DRUGS (5)
  1. SU-011,248 [Suspect]
     Indication: GASTROINTESTINAL STROMAL TUMOUR
     Route: 048
     Dates: start: 20070801, end: 20080618
  2. RABEPRAZOLE SODIUM [Concomitant]
     Route: 048
     Dates: start: 20080512, end: 20080629
  3. ACETAMINOPHEN [Concomitant]
     Route: 048
     Dates: start: 20080509, end: 20080629
  4. LEVOTHYROXINE SODIUM [Concomitant]
     Route: 048
     Dates: start: 20080526, end: 20080629
  5. NAUZELIN [Concomitant]
     Route: 048
     Dates: start: 20080609, end: 20080623

REACTIONS (1)
  - DEATH [None]
